FAERS Safety Report 7784887-0 (Version None)
Quarter: 2011Q3

REPORT INFORMATION
  Report Type: 
  Country: None (occurrence: None)
  Receive Date: 20110928
  Receipt Date: 20110921
  Transmission Date: 20111222
  Serious: Yes (Other)
  Sender: FDA-Public Use
  Company Number: GB-B.I. PHARMACEUTICALS,INC./RIDGEFIELD-2008-DE-06699GD

PATIENT
  Age: 29 Year
  Sex: Female

DRUGS (10)
  1. TRANEXAMIC ACID [Concomitant]
     Indication: DYSMENORRHOEA
     Dosage: 3 G
  2. MEFENAMIC ACID [Concomitant]
     Indication: DYSMENORRHOEA
     Dosage: 1500 MG
  3. FERROUS SULFATE TAB [Concomitant]
     Indication: ANAEMIA
     Route: 048
  4. MEFENAMIC ACID [Concomitant]
     Indication: MENORRHAGIA
  5. NORDETTE-28 [Suspect]
     Indication: DYSMENORRHOEA
     Route: 048
     Dates: end: 20040820
  6. NORDETTE-28 [Suspect]
     Indication: MENORRHAGIA
  7. COMBIVIR [Concomitant]
     Indication: HIV INFECTION
     Dosage: 600 MG ZIDOVUDINE/300 MG LAMIVUDINE
     Dates: start: 19990101
  8. TRANEXAMIC ACID [Concomitant]
     Indication: MENORRHAGIA
  9. NEVIRAPINE [Suspect]
     Indication: HIV INFECTION
     Dosage: 400 MG
     Dates: start: 19990101
  10. ETHINYL ESTRADIOL AND LEVONORGESTREL [Suspect]
     Indication: MENORRHAGIA
     Route: 048
     Dates: start: 20040428

REACTIONS (3)
  - ANAEMIA [None]
  - MENORRHAGIA [None]
  - DRUG INTERACTION [None]
